FAERS Safety Report 19809739 (Version 1)
Quarter: 2021Q3

REPORT INFORMATION
  Report Type: Spontaneous
  Country: US (occurrence: US)
  Receive Date: 20210908
  Receipt Date: 20210908
  Transmission Date: 20211014
  Serious: No
  Sender: FDA-Public Use
  Company Number: US-ROCHE-2861758

PATIENT
  Age: 75 Year
  Sex: Female
  Weight: 48.12 kg

DRUGS (1)
  1. ALECENSA [Suspect]
     Active Substance: ALECTINIB HYDROCHLORIDE
     Indication: NON-SMALL CELL LUNG CANCER
     Dosage: ONGOING NO
     Route: 048
     Dates: start: 20210519

REACTIONS (1)
  - Rash [Recovered/Resolved]
